FAERS Safety Report 6903183-4 (Version None)
Quarter: 2010Q3

REPORT INFORMATION
  Report Type: 
  Country: None (occurrence: None)
  Receive Date: 20100803
  Receipt Date: 20080605
  Transmission Date: 20110219
  Serious: No
  Sender: FDA-Public Use
  Company Number: US-PFIZER INC-2008030463

PATIENT
  Sex: Male
  Weight: 86.2 kg

DRUGS (13)
  1. LYRICA [Suspect]
     Indication: DIABETIC NEUROPATHY
     Dosage: 1 EVERY 3 DAYS
     Dates: start: 20080219
  2. NEURONTIN [Suspect]
     Indication: DIABETIC NEUROPATHY
     Dates: start: 20060701, end: 20080219
  3. PLAVIX [Concomitant]
  4. LOTREL [Concomitant]
     Indication: HYPERTENSION
  5. AMARYL [Concomitant]
     Indication: DIABETES MELLITUS
  6. NADOLOL [Concomitant]
     Indication: CARDIAC DISORDER
  7. NEXIUM [Concomitant]
     Indication: HYPERCHLORHYDRIA
  8. AMITRIPTYLINE HYDROCHLORIDE [Concomitant]
     Indication: DEPRESSION
  9. ALL OTHER THERAPEUTIC PRODUCTS [Concomitant]
     Indication: DEPRESSION
  10. LANTUS [Concomitant]
     Indication: DIABETES MELLITUS
  11. ZETIA [Concomitant]
  12. ALEVE (CAPLET) [Concomitant]
  13. ACETYLSALICYLIC ACID SRT [Concomitant]

REACTIONS (3)
  - FATIGUE [None]
  - RASH [None]
  - SKIN DISORDER [None]
